FAERS Safety Report 20723780 (Version 1)
Quarter: 2022Q2

REPORT INFORMATION
  Report Type: Spontaneous
  Country: US (occurrence: US)
  Receive Date: 20220419
  Receipt Date: 20220419
  Transmission Date: 20220721
  Serious: No
  Sender: FDA-Public Use
  Company Number: US-drreddys-SPO/USA/22/0148677

PATIENT
  Age: 13 Year

DRUGS (1)
  1. ZENATANE [Suspect]
     Active Substance: ISOTRETINOIN
     Indication: Product used for unknown indication
     Dosage: RMA ISSUE DATE: 12 JULY 2021 01:49:23 PM, 20 AUGUST 2021 12:41:12 PM, 13 SEPTEMBER 2021 12:00:00 AM,

REACTIONS (2)
  - Drug ineffective [Unknown]
  - Product quality issue [Unknown]
